FAERS Safety Report 8846196 (Version 2)
Quarter: 2012Q4

REPORT INFORMATION
  Report Type: 
  Country: US (occurrence: US)
  Receive Date: 20121017
  Receipt Date: 20121102
  Transmission Date: 20130627
  Serious: Yes (Death, Hospitalization)
  Sender: FDA-Public Use
  Company Number: US-ACTELION-A-NJ2012-72531

PATIENT
  Age: 20 Year
  Sex: Female

DRUGS (1)
  1. TRACLEER [Suspect]
     Indication: PULMONARY ARTERIAL HYPERTENSION
     Dosage: UNK
     Route: 048
     Dates: end: 20121003

REACTIONS (4)
  - Cardiac arrest [Fatal]
  - Pulmonary haemorrhage [Unknown]
  - Nasopharyngitis [Unknown]
  - Arthralgia [Unknown]
